FAERS Safety Report 11155999 (Version 2)
Quarter: 2015Q2

REPORT INFORMATION
  Report Type: Spontaneous
  Country: JP (occurrence: JP)
  Receive Date: 20150602
  Receipt Date: 20150602
  Transmission Date: 20150821
  Serious: Yes (Hospitalization, Other)
  Sender: FDA-Public Use
  Company Number: JP-WATSON-2015-11294

PATIENT
  Age: 53 Year
  Sex: Female

DRUGS (3)
  1. PREDNISOLONE (UNKNOWN) [Suspect]
     Active Substance: PREDNISOLONE
     Dosage: 1 MG/KG, DAILY
     Route: 065
     Dates: start: 2014
  2. URSO [Suspect]
     Active Substance: URSODIOL
     Indication: BILIARY CIRRHOSIS PRIMARY
     Dosage: UNK
     Route: 048
     Dates: start: 2013
  3. PREDNISOLONE (UNKNOWN) [Suspect]
     Active Substance: PREDNISOLONE
     Indication: AUTOIMMUNE HEPATITIS
     Dosage: 10 MG, DAILY
     Route: 065
     Dates: start: 2013

REACTIONS (2)
  - Autoimmune hepatitis [Recovering/Resolving]
  - Thrombotic thrombocytopenic purpura [Unknown]
